FAERS Safety Report 9593034 (Version 1)
Quarter: 2013Q3

REPORT INFORMATION
  Report Type: Spontaneous
  Country: US (occurrence: None)
  Receive Date: 20130930
  Receipt Date: 20130930
  Transmission Date: 20140515
  Serious: Yes (Other)
  Sender: FDA-Public Use
  Company Number: 1000047591

PATIENT
  Age: 60 Year
  Sex: Male

DRUGS (13)
  1. LINZESS [Suspect]
     Indication: IRRITABLE BOWEL SYNDROME
     Dosage: 290 MCG, 1 IN 1 D
     Route: 048
     Dates: start: 20130801
  2. PROBIOTIC NOS [Concomitant]
  3. DICYCLOMINE [Concomitant]
  4. METAMUCIL [Concomitant]
  5. MIRALAX [Concomitant]
  6. HYDROCORTISONE [Concomitant]
  7. MIRTAZAPINE [Concomitant]
  8. PRISTIQ [Concomitant]
  9. KLONOPIN [Concomitant]
  10. LIPITOR [Concomitant]
  11. METOPROLOL [Concomitant]
  12. LISINOPRIL [Concomitant]
  13. BABY ASPIRIN [Concomitant]

REACTIONS (2)
  - Diarrhoea [None]
  - Gastrointestinal motility disorder [None]
